FAERS Safety Report 9723320 (Version 1)
Quarter: 2013Q4

REPORT INFORMATION
  Report Type: Spontaneous
  Country: US (occurrence: US)
  Receive Date: 20131202
  Receipt Date: 20131202
  Transmission Date: 20140711
  Serious: No
  Sender: FDA-Public Use
  Company Number: US-GLAXOSMITHKLINE-A1001292A

PATIENT
  Sex: Female

DRUGS (3)
  1. FLONASE [Suspect]
     Route: 045
  2. VERAMYST [Concomitant]
  3. Z-PAK [Concomitant]

REACTIONS (3)
  - Nasal inflammation [Unknown]
  - Eye irritation [Unknown]
  - Eye pruritus [Unknown]
